FAERS Safety Report 6921468-2 (Version None)
Quarter: 2010Q3

REPORT INFORMATION
  Report Type: 
  Country: None (occurrence: None)
  Receive Date: 20100812
  Receipt Date: 20090310
  Transmission Date: 20110219
  Serious: No
  Sender: FDA-Public Use
  Company Number: A0772464A

PATIENT
  Age: 75 Year
  Sex: Female

DRUGS (2)
  1. TAGAMET HB 200 [Suspect]
     Route: 048
  2. UNKNOWN [Concomitant]

REACTIONS (2)
  - FATIGUE [None]
  - SOMNOLENCE [None]
